FAERS Safety Report 4384760-4 (Version None)
Quarter: 2004Q2

REPORT INFORMATION
  Report Type: 
  Country: None (occurrence: None)
  Receive Date: 20040621
  Receipt Date: 20040615
  Transmission Date: 20050107
  Serious: Yes (Death, Hospitalization, Other)
  Sender: FDA-Public Use
  Company Number: CO-SHR-03-017632

PATIENT
  Age: 40 Year
  Sex: Female
  Weight: 65 kg

DRUGS (1)
  1. MIRENA [Suspect]
     Indication: MENORRHAGIA
     Dosage: 20 UG/DAY, CONT, INTRA-UTERINE
     Route: 015
     Dates: start: 20031113, end: 20031118

REACTIONS (9)
  - ABDOMINAL PAIN [None]
  - COAGULOPATHY [None]
  - DYSPNOEA [None]
  - HAEMODYNAMIC INSTABILITY [None]
  - LEUKOPENIA [None]
  - LIVER DISORDER [None]
  - MYOMETRITIS [None]
  - SALPINGITIS [None]
  - SEPTIC SHOCK [None]
